APPROVED DRUG PRODUCT: ISOETHARINE HYDROCHLORIDE
Active Ingredient: ISOETHARINE HYDROCHLORIDE
Strength: 0.08%
Dosage Form/Route: SOLUTION;INHALATION
Application: A086651 | Product #002
Applicant: INTERNATIONAL MEDICATION SYSTEMS LTD
Approved: Approved Prior to Jan 1, 1982 | RLD: No | RS: No | Type: DISCN